FAERS Safety Report 14531580 (Version 1)
Quarter: 2018Q1

REPORT INFORMATION
  Report Type: Spontaneous
  Country: IT (occurrence: IT)
  Receive Date: 20180214
  Receipt Date: 20180214
  Transmission Date: 20180509
  Serious: Yes (Life-Threatening, Hospitalization, Other)
  Sender: FDA-Public Use
  Company Number: IT-MYLANLABS-2017M1079844

PATIENT
  Age: 60 Year
  Sex: Male

DRUGS (6)
  1. BENDAMUSTINE HYDROCHLORIDE. [Suspect]
     Active Substance: BENDAMUSTINE HYDROCHLORIDE
     Indication: HODGKIN^S DISEASE
     Route: 065
  2. DACARBAZINE. [Suspect]
     Active Substance: DACARBAZINE
     Indication: HODGKIN^S DISEASE
     Dosage: INFUSION,637 MG IN SF 250CC IN 60, ABVD THERAPY
     Route: 050
  3. DOXORUBICIN [Suspect]
     Active Substance: DOXORUBICIN
     Indication: HODGKIN^S DISEASE
     Dosage: UNK UNK, CYCLE, ABVD THERAPY
     Route: 050
  4. VINBLASTINE [Suspect]
     Active Substance: VINBLASTINE
     Indication: HODGKIN^S DISEASE
     Dosage: INFUSION, 10.2 MG IN PUSH, ABVD THERAPY
     Route: 065
  5. BLEOMYCIN [Suspect]
     Active Substance: BLEOMYCIN SULFATE
     Indication: HODGKIN^S DISEASE
     Dosage: INFUSION,17 MG IN SF 100 CC IN 30, ABVD THERAPY
     Route: 065
  6. ADRIAMYCIN [Suspect]
     Active Substance: DOXORUBICIN HYDROCHLORIDE
     Indication: HODGKIN^S DISEASE
     Dosage: INFUSION,42 MG IN SF 100CC IN 30, ABVD THERAPY
     Route: 065

REACTIONS (12)
  - Cardiotoxicity [Recovered/Resolved]
  - Cold sweat [Recovered/Resolved]
  - Troponin I increased [Recovered/Resolved]
  - Cardiogenic shock [Recovered/Resolved]
  - Hypokinesia [Recovered/Resolved]
  - Pulmonary oedema [Recovered/Resolved]
  - Cardiac failure acute [Recovered/Resolved]
  - Off label use [Unknown]
  - Left ventricular dysfunction [Recovered/Resolved]
  - Confusional state [Recovered/Resolved]
  - Blood pressure systolic decreased [Recovered/Resolved]
  - Pulse pressure decreased [Recovered/Resolved]
